FAERS Safety Report 5389287-9 (Version None)
Quarter: 2007Q3

REPORT INFORMATION
  Report Type: 
  Country: None (occurrence: None)
  Receive Date: 20070713
  Receipt Date: 20070706
  Transmission Date: 20080115
  Serious: Yes (Other)
  Sender: FDA-Public Use
  Company Number: CHPA2007US07493

PATIENT
  Age: 42 Year
  Sex: Female
  Weight: 125.6 kg

DRUGS (4)
  1. NICOTINE [Suspect]
     Indication: SMOKING CESSATION THERAPY
     Dosage: 21 MG, QD, TRANSDERMAL
     Route: 062
     Dates: start: 20070618
  2. ANTIASTHMATICS (NO INGREDIENTS/SUBSTANCES) [Concomitant]
  3. ALLERGY MEDICATION (NO INGREDIENTS/SUBSTANCES) [Concomitant]
  4. ALL OTHER THERAPEUTIC PRODUCTS (NO INGREDIENTS/SUBSTANCES) [Concomitant]

REACTIONS (3)
  - CYANOSIS [None]
  - OVERDOSE [None]
  - TREATMENT NONCOMPLIANCE [None]
